FAERS Safety Report 23751143 (Version 1)
Quarter: 2024Q2

REPORT INFORMATION
  Report Type: Spontaneous
  Country: US (occurrence: US)
  Receive Date: 20240417
  Receipt Date: 20240417
  Transmission Date: 20240716
  Serious: Yes (Other)
  Sender: FDA-Public Use
  Company Number: None

PATIENT
  Age: 30 Year
  Sex: Female

DRUGS (4)
  1. DOXORUBICIN [Suspect]
     Active Substance: DOXORUBICIN
     Indication: Bone sarcoma
     Dosage: 1 CYCLE
     Dates: start: 2023
  2. MESNA [Suspect]
     Active Substance: MESNA
     Indication: Bone sarcoma
     Dosage: 1 CYCLE
     Dates: start: 2023
  3. IFOSFAMIDE [Suspect]
     Active Substance: IFOSFAMIDE
     Indication: Bone sarcoma
     Dosage: 1 CYCLE
     Dates: start: 2023
  4. OXYGEN [Concomitant]
     Active Substance: OXYGEN
     Indication: Product used for unknown indication
     Dosage: NASAL CANNULA
     Route: 045
     Dates: start: 2023

REACTIONS (3)
  - Anaemia [Unknown]
  - Vomiting [Unknown]
  - Nausea [Unknown]

NARRATIVE: CASE EVENT DATE: 20230101
